FAERS Safety Report 9565197 (Version 2)
Quarter: 2013Q4

REPORT INFORMATION
  Report Type: Spontaneous
  Country: HU (occurrence: HU)
  Receive Date: 20130930
  Receipt Date: 20131008
  Transmission Date: 20140711
  Serious: Yes (Hospitalization)
  Sender: FDA-Public Use
  Company Number: HU-ROCHE-1282553

PATIENT
  Age: 79 Year
  Sex: Female

DRUGS (18)
  1. RITUXIMAB [Suspect]
     Indication: DIFFUSE LARGE B-CELL LYMPHOMA
     Route: 065
     Dates: start: 20061212, end: 20070327
  2. RITUXIMAB [Suspect]
     Route: 065
     Dates: start: 200708
  3. CYCLOPHOSPHAMIDE [Suspect]
     Indication: DIFFUSE LARGE B-CELL LYMPHOMA
     Route: 065
     Dates: start: 20061212, end: 20070327
  4. CYCLOPHOSPHAMIDE [Suspect]
     Route: 065
     Dates: start: 200708
  5. DOXORUBICIN [Suspect]
     Indication: DIFFUSE LARGE B-CELL LYMPHOMA
     Route: 065
     Dates: start: 20061212, end: 20070327
  6. DOXORUBICIN [Suspect]
     Route: 065
     Dates: start: 200708
  7. VINCRISTIN [Suspect]
     Indication: DIFFUSE LARGE B-CELL LYMPHOMA
     Route: 065
     Dates: start: 20061212, end: 20070327
  8. VINCRISTIN [Suspect]
     Route: 065
     Dates: start: 200708
  9. PREDNISOLONE [Suspect]
     Indication: DIFFUSE LARGE B-CELL LYMPHOMA
     Route: 065
  10. METHYLPREDNISOLONE [Suspect]
     Indication: DIFFUSE LARGE B-CELL LYMPHOMA
     Route: 065
     Dates: start: 20061212, end: 20070327
  11. METHYLPREDNISOLONE [Suspect]
     Route: 065
     Dates: start: 200708
  12. ETOPOSIDE [Suspect]
     Indication: DIFFUSE LARGE B-CELL LYMPHOMA
     Route: 065
     Dates: start: 200708
  13. TRITACE HCT [Concomitant]
  14. AMLIPIN [Concomitant]
  15. LOKREN [Concomitant]
  16. OMEPRAZOLE [Concomitant]
  17. ALGOPYRIN [Concomitant]
  18. DORMICUM (UNSPEC) [Concomitant]
     Route: 065

REACTIONS (6)
  - Pancytopenia [Unknown]
  - Pyrexia [Recovered/Resolved]
  - Bone marrow failure [Recovered/Resolved]
  - Staphylococcal sepsis [Not Recovered/Not Resolved]
  - Nausea [Unknown]
  - Anaemia [Unknown]
